FAERS Safety Report 4755020-4 (Version None)
Quarter: 2005Q3

REPORT INFORMATION
  Report Type: 
  Country: None (occurrence: None)
  Receive Date: 20050826
  Receipt Date: 20031010
  Transmission Date: 20060218
  Serious: Yes (Death)
  Sender: FDA-Public Use
  Company Number: USA-2003-0010209

PATIENT
  Age: 56 Year
  Sex: Female

DRUGS (4)
  1. OXYCODONE HCL [Suspect]
  2. MORPHINE SULFATE [Suspect]
  3. AMITRIPTYLINE HCL [Suspect]
  4. ACETAMINOPHEN [Suspect]

REACTIONS (2)
  - INTENTIONAL MISUSE [None]
  - MULTIPLE DRUG OVERDOSE [None]
